FAERS Safety Report 18130833 (Version 3)
Quarter: 2020Q4

REPORT INFORMATION
  Report Type: Spontaneous
  Country: US (occurrence: US)
  Receive Date: 20200810
  Receipt Date: 20201104
  Transmission Date: 20210113
  Serious: No
  Sender: FDA-Public Use
  Company Number: US-PFIZER INC-2019334902

PATIENT
  Age: 76 Year
  Sex: Female

DRUGS (4)
  1. PREMARIN [Suspect]
     Active Substance: ESTROGENS, CONJUGATED
     Dosage: 1 G, UNK (THREE TIMES A WEEK AS DIRECTED)
  2. PREMARIN [Suspect]
     Active Substance: ESTROGENS, CONJUGATED
     Dosage: 1 G, UNK (0.625 MG/30 G)(1 GRAM THREE TIMES PER WEEK AS DIRECTED)
  3. PREMARIN [Suspect]
     Active Substance: ESTROGENS, CONJUGATED
     Dosage: 1 G, 2X/WEEK [0.625 MG/G; 1 GRAM TWICE A WEEK AS DIRECT]
  4. PREMARIN [Suspect]
     Active Substance: ESTROGENS, CONJUGATED
     Dosage: 1 G, UNK [1 GRAM Q (EVERY) M, W, F AT AS DIRECTED/1 (ONE) GRAM A M, W, F AT BEDTIME AS DIRECTED]

REACTIONS (3)
  - Product prescribing error [Unknown]
  - Off label use [Unknown]
  - Hypoacusis [Unknown]
